FAERS Safety Report 8903306 (Version 1)
Quarter: 2012Q4

REPORT INFORMATION
  Report Type: Report from Study
  Country: GB (occurrence: GB)
  Receive Date: 20121112
  Receipt Date: 20121112
  Transmission Date: 20130627
  Serious: Yes (Hospitalization)
  Sender: FDA-Public Use
  Company Number: US-ASTRAZENECA-2012SE82159

PATIENT
  Sex: Male
  Weight: 81.8 kg

DRUGS (4)
  1. GEMCITABINE [Suspect]
     Indication: TRANSITIONAL CELL CARCINOMA
     Dosage: 1900 MG, 30 MIN IV INFUSION, ON DAY 1 AND 8 OF EACH 21 DAY CYCLE
     Route: 042
     Dates: start: 20120622
  2. CARBOPLATIN [Suspect]
     Indication: TRANSITIONAL CELL CARCINOMA
     Dosage: 300 MG, 30 MIN IV INFUSION, ON DAY 1 OF EACH 21 DAY CYCLE
     Route: 042
     Dates: start: 20120622
  3. ZD6474 [Suspect]
     Indication: TRANSITIONAL CELL CARCINOMA
     Route: 048
     Dates: start: 20120622
  4. DOMPERIDONE [Concomitant]
     Route: 048
     Dates: start: 20120813

REACTIONS (5)
  - Lower respiratory tract infection [Not Recovered/Not Resolved]
  - Hypertension [Recovered/Resolved]
  - Haemoglobin decreased [None]
  - Oedema peripheral [None]
  - Oedema peripheral [None]
